FAERS Safety Report 9563944 (Version 1)
Quarter: 2013Q3

REPORT INFORMATION
  Report Type: Report from Study
  Country: CA (occurrence: CA)
  Receive Date: 20130928
  Receipt Date: 20130928
  Transmission Date: 20140515
  Serious: Yes (Other)
  Sender: FDA-Public Use
  Company Number: CA-BAYER-2013-115828

PATIENT
  Sex: Female

DRUGS (2)
  1. ACETYLSALICYLIC ACID (} 100 MG) [Suspect]
     Indication: ANTIPLATELET THERAPY
     Dosage: 325 MG, QD
  2. ACETYLSALICYLIC ACID (} 100 MG) [Suspect]
     Indication: THROMBOSIS

REACTIONS (4)
  - Cerebral haematoma [None]
  - Aneurysm ruptured [None]
  - Cerebral vasoconstriction [None]
  - Cerebral infarction [None]
